FAERS Safety Report 7917533-3 (Version None)
Quarter: 2011Q4

REPORT INFORMATION
  Report Type: 
  Country: None (occurrence: None)
  Receive Date: 20111116
  Receipt Date: 20111111
  Transmission Date: 20120403
  Serious: Yes (Other)
  Sender: FDA-Public Use
  Company Number: US-PFIZER INC-2011276973

PATIENT
  Sex: Female
  Weight: 59.41 kg

DRUGS (13)
  1. SERTRALINE HYDROCHLORIDE [Suspect]
     Indication: ARRHYTHMIA
  2. CHLORPHENIRAMINE MALEATE [Concomitant]
     Indication: HYPERSENSITIVITY
     Dosage: UNK
  3. SERTRALINE HYDROCHLORIDE [Suspect]
     Indication: ATRIAL FIBRILLATION
  4. METFORMIN [Concomitant]
     Indication: DIABETES MELLITUS
     Dosage: 500 MG, DAILY
  5. ALPRAZOLAM [Concomitant]
     Dosage: 0.5 MG, DAILY
  6. ACETYLSALICYLIC ACID [Concomitant]
     Dosage: UNK, DAILY
  7. PAXIL [Suspect]
     Indication: ATRIAL FIBRILLATION
  8. PAXIL [Suspect]
     Indication: ANXIETY
  9. SERTRALINE HYDROCHLORIDE [Suspect]
     Indication: ANXIETY
  10. PAXIL [Suspect]
     Indication: HEART RATE
     Dosage: UNK
     Dates: start: 20111001
  11. SERTRALINE HYDROCHLORIDE [Suspect]
     Indication: HEART RATE
     Dosage: 50 MG DAILY
     Dates: end: 20110901
  12. PAXIL [Suspect]
     Indication: ARRHYTHMIA
  13. OMEPRAZOLE [Concomitant]
     Indication: ABDOMINAL DISCOMFORT
     Dosage: 20 MG, DAILY

REACTIONS (3)
  - ATRIAL FIBRILLATION [None]
  - FLUSHING [None]
  - ERYTHEMA [None]
